FAERS Safety Report 7489103-5 (Version None)
Quarter: 2011Q2

REPORT INFORMATION
  Report Type: 
  Country: None (occurrence: None)
  Receive Date: 20110518
  Receipt Date: 20110429
  Transmission Date: 20111010
  Serious: No
  Sender: FDA-Public Use
  Company Number: US-B.I. PHARMACEUTICALS,INC./RIDGEFIELD-2010-BP-13356BP

PATIENT
  Sex: Female

DRUGS (6)
  1. IMDUR [Concomitant]
     Indication: HYPERTENSION
  2. TOPROL-XL [Concomitant]
     Indication: HYPERTENSION
  3. NORVASC [Concomitant]
     Indication: HYPERTENSION
  4. ASPIRIN [Concomitant]
     Indication: HYPERTENSION
  5. PRADAXA [Suspect]
     Indication: ATRIAL FIBRILLATION
     Dosage: 300 MG
     Route: 048
     Dates: start: 20101119
  6. ZOCOR [Concomitant]

REACTIONS (4)
  - FATIGUE [None]
  - NAUSEA [None]
  - FEELING ABNORMAL [None]
  - BACK PAIN [None]
